FAERS Safety Report 22979198 (Version 3)
Quarter: 2023Q4

REPORT INFORMATION
  Report Type: Report from Study
  Country: CA (occurrence: CA)
  Receive Date: 20230925
  Receipt Date: 20231020
  Transmission Date: 20240110
  Serious: Yes (Hospitalization, Other)
  Sender: FDA-Public Use
  Company Number: CA-MYLANLABS-2023M1101167

PATIENT

DRUGS (1)
  1. HULIO [Suspect]
     Active Substance: ADALIMUMAB-FKJP
     Indication: Rheumatoid arthritis
     Dosage: 40 MILLIGRAM, QW (WEEKLY)
     Route: 058
     Dates: start: 20230723

REACTIONS (2)
  - Cellulitis [Recovering/Resolving]
  - Therapy interrupted [Unknown]
